FAERS Safety Report 26132534 (Version 1)
Quarter: 2025Q4

REPORT INFORMATION
  Report Type: Spontaneous
  Country: US (occurrence: None)
  Receive Date: 20251208
  Receipt Date: 20251208
  Transmission Date: 20260117
  Serious: No
  Sender: ALKERMES
  Company Number: US-ALKERMES INC.-ALK-2025-003184

PATIENT
  Sex: Female

DRUGS (1)
  1. LYBALVI [Suspect]
     Active Substance: OLANZAPINE\SAMIDORPHAN L-MALATE
     Indication: Schizophrenia
     Dosage: 20MG/10MG, QD

REACTIONS (5)
  - Product dose omission in error [Unknown]
  - Condition aggravated [Unknown]
  - Psychiatric decompensation [Unknown]
  - Hallucination [Unknown]
  - Screaming [Unknown]

NARRATIVE: CASE EVENT DATE: 20251101
